FAERS Safety Report 6234449-1 (Version None)
Quarter: 2009Q2

REPORT INFORMATION
  Report Type: 
  Country: None (occurrence: None)
  Receive Date: 20090615
  Receipt Date: 20090605
  Transmission Date: 20091009
  Serious: Yes (Hospitalization)
  Sender: FDA-Public Use
  Company Number: 090527-0000717

PATIENT
  Age: 38 Year
  Sex: Female
  Weight: 59 kg

DRUGS (6)
  1. COSMEGEN [Suspect]
     Indication: CHORIOCARCINOMA
     Dosage: 0.5 MG; IVDRP; 0.5 MG; IVDRP
     Route: 041
     Dates: start: 20090323, end: 20090327
  2. COSMEGEN [Suspect]
     Indication: CHORIOCARCINOMA
     Dosage: 0.5 MG; IVDRP; 0.5 MG; IVDRP
     Route: 041
     Dates: start: 20090511, end: 20090515
  3. SEROTONE [Concomitant]
  4. DECADRON [Concomitant]
  5. NEOPHAGEN [Concomitant]
  6. TATHION [Concomitant]

REACTIONS (1)
  - CONVULSION [None]
